FAERS Safety Report 8738573 (Version 2)
Quarter: 2012Q4

REPORT INFORMATION
  Report Type: 
  Country: US (occurrence: US)
  Receive Date: 20120823
  Receipt Date: 20121031
  Transmission Date: 20130627
  Serious: Yes (Other)
  Sender: FDA-Public Use
  Company Number: US-BAYER-2012-085570

PATIENT
  Age: 52 Year
  Sex: Female
  Weight: 63 kg

DRUGS (19)
  1. TRASYLOL [Suspect]
     Indication: MULTIPLE VESSEL BYPASS
     Dosage: 1 ml, UNK
     Route: 042
     Dates: start: 20050707, end: 20050707
  2. TRASYLOL [Suspect]
     Indication: MULTIPLE VESSEL BYPASS
     Dosage: 200 ml loading dose
     Dates: start: 20050707, end: 20050707
  3. TRASYLOL [Suspect]
     Indication: MULTIPLE VESSEL BYPASS
     Dosage: 50 ml/hr infusion
     Dates: start: 20050707, end: 20050707
  4. ACETYLSALICYLIC ACID (} 100 MG) [Concomitant]
     Dosage: 325 mg, QOD
     Route: 048
  5. CATAPRESS [Concomitant]
     Dosage: 0.3 mg, TID
     Route: 048
  6. LOPRESSOR [Concomitant]
     Dosage: 25 mg, BID
     Route: 048
  7. AZOL [Concomitant]
     Dosage: 12.5 mg, QOD
     Route: 048
  8. ZOCOR [Concomitant]
     Dosage: 20 mg, UNK
     Route: 048
  9. VERSED [Concomitant]
     Dosage: 6 mg, UNK
     Route: 042
     Dates: start: 20080707
  10. INSULIN [Concomitant]
     Dosage: UNK
     Route: 042
     Dates: start: 20080707
  11. ETOMIDATE [Concomitant]
     Dosage: UNK
     Route: 042
     Dates: start: 20080707
  12. FENTANYL [Concomitant]
     Dosage: 3750 mcg
     Route: 042
     Dates: start: 20080707
  13. SEVOFLURANE [Concomitant]
     Dosage: UNK
     Dates: start: 20080707
  14. ANCEF [Concomitant]
     Dosage: 2 g, UNK
     Route: 042
     Dates: start: 20080707
  15. EPINEPHRINE [Concomitant]
     Dosage: UNK
     Route: 042
     Dates: start: 20080707
  16. DOPAMINE [Concomitant]
     Dosage: UNK
     Route: 042
     Dates: start: 20080707
  17. PROTAMINE [Concomitant]
     Dosage: 250 mg, UNK
     Route: 042
  18. HEPARIN [Concomitant]
     Dosage: 48000 u, UNK
     Dates: start: 20080707
  19. PRIMACOR [Concomitant]
     Dosage: 31 ml, UNK
     Route: 048
     Dates: start: 20080707

REACTIONS (1)
  - Renal failure [None]
